FAERS Safety Report 8135810-0 (Version None)
Quarter: 2012Q1

REPORT INFORMATION
  Report Type: 
  Country: None (occurrence: None)
  Receive Date: 20120103
  Receipt Date: 20111105
  Transmission Date: 20120608
  Serious: No
  Sender: FDA-Public Use
  Company Number: AE-2011-003116

PATIENT
  Age: 53 Year
  Sex: Female
  Weight: 58.9676 kg

DRUGS (3)
  1. INCIVEK [Suspect]
     Dosage: 2250 MG (750 MG, 3 IN 1 D), ORAL
     Route: 048
     Dates: start: 20111021
  2. PEGINTERFERON (PEGINTERFERON ALFA02A) [Concomitant]
  3. RIBAPAK (RIBAVIRIN) [Concomitant]

REACTIONS (3)
  - HEADACHE [None]
  - PYREXIA [None]
  - RASH PRURITIC [None]
